FAERS Safety Report 17526238 (Version 1)
Quarter: 2020Q1

REPORT INFORMATION
  Report Type: Spontaneous
  Country: US (occurrence: US)
  Receive Date: 20200311
  Receipt Date: 20200311
  Transmission Date: 20200409
  Serious: No
  Sender: FDA-Public Use
  Company Number: None

PATIENT
  Age: 36 Year
  Sex: Male
  Weight: 81 kg

DRUGS (1)
  1. FINASTERIDE. [Suspect]
     Active Substance: FINASTERIDE
     Indication: ALOPECIA
     Route: 048
     Dates: start: 20191108, end: 20200308

REACTIONS (4)
  - Inappropriate affect [None]
  - Depression [None]
  - Poor quality sleep [None]
  - Libido decreased [None]

NARRATIVE: CASE EVENT DATE: 20200308
